FAERS Safety Report 9934853 (Version 2)
Quarter: 2014Q1

REPORT INFORMATION
  Report Type: Report from Study
  Country: JP (occurrence: JP)
  Receive Date: 20140228
  Receipt Date: 20140319
  Transmission Date: 20141002
  Serious: Yes (Hospitalization, Other)
  Sender: FDA-Public Use
  Company Number: JP-TAKEDA-2014TJP001897

PATIENT
  Age: 70 Year
  Sex: Female

DRUGS (4)
  1. ALOGLIPTIN [Suspect]
     Indication: TYPE 2 DIABETES MELLITUS
     Dosage: 25 MG, QD
     Route: 048
     Dates: start: 20120305, end: 20121225
  2. AMARYL [Concomitant]
     Indication: TYPE 2 DIABETES MELLITUS
     Dosage: 1 MG, 1 DAY
     Route: 048
  3. METGLUCO [Concomitant]
     Indication: TYPE 2 DIABETES MELLITUS
     Dosage: 750 MG, 1 DAY
     Route: 048
  4. LIPOVAS                            /00848101/ [Concomitant]
     Dosage: UNK
     Route: 048

REACTIONS (1)
  - Metastases to lymph nodes [Unknown]
